FAERS Safety Report 7762956-9 (Version None)
Quarter: 2011Q3

REPORT INFORMATION
  Report Type: 
  Country: None (occurrence: None)
  Receive Date: 20110920
  Receipt Date: 20110909
  Transmission Date: 20111222
  Serious: Yes (Other)
  Sender: FDA-Public Use
  Company Number: MX-US-EMD SERONO, INC.-7083392

PATIENT
  Sex: Female
  Weight: 25 kg

DRUGS (3)
  1. L ARGININE [Concomitant]
  2. ONYRIC [Concomitant]
  3. SAIZEN [Suspect]
     Indication: BODY HEIGHT DECREASED
     Route: 058
     Dates: start: 20110830

REACTIONS (2)
  - MONOPLEGIA [None]
  - INJECTION SITE PAIN [None]
